FAERS Safety Report 8437985-2 (Version None)
Quarter: 2012Q2

REPORT INFORMATION
  Report Type: 
  Country: None (occurrence: None)
  Receive Date: 20120614
  Receipt Date: 20120526
  Transmission Date: 20120825
  Serious: No
  Sender: FDA-Public Use
  Company Number: US-AMGEN-USASP2012033543

PATIENT
  Sex: Female

DRUGS (1)
  1. PROLIA [Suspect]
     Indication: PRODUCT USED FOR UNKNOWN INDICATION
     Dosage: UNK
     Dates: start: 20120306

REACTIONS (6)
  - BLOOD CHOLESTEROL INCREASED [None]
  - MYALGIA [None]
  - RASH [None]
  - PAIN IN JAW [None]
  - JOINT SWELLING [None]
  - DIARRHOEA [None]
